FAERS Safety Report 8469628-6 (Version None)
Quarter: 2012Q2

REPORT INFORMATION
  Report Type: 
  Country: None (occurrence: None)
  Receive Date: 20120626
  Receipt Date: 20120501
  Transmission Date: 20120825
  Serious: No
  Sender: FDA-Public Use
  Company Number: US-TEVA-336343USA

PATIENT

DRUGS (2)
  1. QNASL [Suspect]
     Indication: RHINITIS SEASONAL
     Route: 045
     Dates: start: 20120425, end: 20120429
  2. QNASL [Suspect]
     Indication: RHINITIS PERENNIAL

REACTIONS (1)
  - NASAL ODOUR [None]
